FAERS Safety Report 7957248-9 (Version None)
Quarter: 2011Q4

REPORT INFORMATION
  Report Type: 
  Country: None (occurrence: None)
  Receive Date: 20111205
  Receipt Date: 20111114
  Transmission Date: 20120403
  Serious: Yes (Death, Other)
  Sender: FDA-Public Use
  Company Number: US-US-EMD SERONO, INC.-7020765

PATIENT
  Sex: Female

DRUGS (1)
  1. REBIF [Suspect]
     Indication: MULTIPLE SCLEROSIS
     Route: 058
     Dates: start: 20100514

REACTIONS (6)
  - GENERAL PHYSICAL HEALTH DETERIORATION [None]
  - COMPLETED SUICIDE [None]
  - MUSCLE ATROPHY [None]
  - SUICIDE ATTEMPT [None]
  - ANGER [None]
  - LOGORRHOEA [None]
